FAERS Safety Report 7638196-0 (Version None)
Quarter: 2011Q3

REPORT INFORMATION
  Report Type: 
  Country: None (occurrence: None)
  Receive Date: 20110727
  Receipt Date: 20110719
  Transmission Date: 20111222
  Serious: Yes (Hospitalization, Disabling)
  Sender: FDA-Public Use
  Company Number: US-JNJFOC-20110708184

PATIENT
  Sex: Male
  Weight: 120.2 kg

DRUGS (10)
  1. DURAGESIC-100 [Suspect]
     Route: 062
  2. LOVAZA [Concomitant]
     Indication: BLOOD CHOLESTEROL
     Route: 048
  3. NEURONTIN [Concomitant]
     Indication: PAIN
     Dosage: 600 MG, ONE AND A HALF TABLET THREE TIMES A DAY
     Route: 048
  4. DURAGESIC-100 [Suspect]
     Route: 062
  5. MUSCLE RELAXANTS [Suspect]
     Indication: MUSCLE RELAXANT THERAPY
     Route: 065
  6. DURAGESIC-100 [Suspect]
     Indication: PAIN
     Dosage: 100 UG/HR + 25 UG/HR
     Route: 062
  7. AGGRENOX [Concomitant]
     Indication: CEREBROVASCULAR ACCIDENT
     Dosage: 25 MG/100 MG ONCE DAY
     Route: 048
  8. DARVOCET [Suspect]
     Indication: PRODUCT USED FOR UNKNOWN INDICATION
     Route: 065
  9. METOPROLOL TARTRATE [Concomitant]
     Indication: BLOOD PRESSURE
     Route: 048
  10. ZANAFLEX [Concomitant]
     Indication: MUSCLE RELAXANT THERAPY
     Route: 048

REACTIONS (4)
  - ROAD TRAFFIC ACCIDENT [None]
  - NONSPECIFIC REACTION [None]
  - DISABILITY [None]
  - MEMORY IMPAIRMENT [None]
